FAERS Safety Report 9632646 (Version 7)
Quarter: 2014Q2

REPORT INFORMATION
  Report Type: Report from Study
  Country: US (occurrence: US)
  Receive Date: 20131018
  Receipt Date: 20140606
  Transmission Date: 20141212
  Serious: Yes (Death, Life-Threatening, Hospitalization, Disabling)
  Sender: FDA-Public Use
  Company Number: US-VIIV HEALTHCARE LIMITED-B0905447A

PATIENT
  Age: 64 Year
  Sex: Male

DRUGS (22)
  1. DOLUTEGRAVIR [Suspect]
     Indication: HIV INFECTION
     Dosage: 50MG TWICE PER DAY
     Route: 048
     Dates: start: 20130307, end: 20130716
  2. ACETAMINOPHEN [Concomitant]
     Indication: PYREXIA
     Route: 048
     Dates: start: 20130702, end: 20130727
  3. ACETAMINOPHEN [Concomitant]
     Indication: PAIN
  4. IBUPROFEN [Concomitant]
     Indication: PAIN
     Route: 048
     Dates: start: 20130718, end: 20130727
  5. ACYCLOVIR [Concomitant]
     Indication: RASH
     Route: 061
     Dates: start: 201307, end: 20130903
  6. MULTIVITAMIN [Concomitant]
     Indication: NUTRITIONAL SUPPLEMENTATION
     Dosage: 5ML PER DAY
     Route: 048
     Dates: start: 20130703, end: 20130903
  7. PROPOFOL [Concomitant]
     Indication: SEDATION
     Route: 065
     Dates: start: 20130703, end: 20130706
  8. VERSED [Concomitant]
     Indication: SEDATION
     Route: 065
     Dates: start: 20130703, end: 20130706
  9. ZINC OXIDE [Concomitant]
     Indication: WOUND TREATMENT
     Route: 061
     Dates: start: 20130701, end: 20130903
  10. ONDANSETRON [Concomitant]
     Indication: NAUSEA
     Route: 042
     Dates: start: 20130723, end: 20130727
  11. ONDANSETRON [Concomitant]
     Indication: VOMITING
  12. ASCORBIC ACID [Concomitant]
     Indication: NUTRITIONAL SUPPLEMENTATION
     Dosage: 500MG TWICE PER DAY
     Route: 048
     Dates: start: 20130718, end: 20130903
  13. MOUTH WASH [Concomitant]
     Indication: MUCOSAL INFLAMMATION
     Route: 048
     Dates: start: 20130722, end: 20130903
  14. MAGNESIUM OXIDE [Concomitant]
     Indication: MAGNESIUM DEFICIENCY
     Dosage: 400MG PER DAY
     Route: 048
     Dates: start: 20130719, end: 20130903
  15. POTASSIUM CHLORIDE [Concomitant]
     Indication: NUTRITIONAL SUPPLEMENTATION
     Dosage: 20MEQ PER DAY
     Route: 048
     Dates: start: 20130719, end: 20130903
  16. PROTEIN SUPPLEMENTS [Concomitant]
     Indication: NUTRITIONAL SUPPLEMENTATION
     Route: 065
     Dates: start: 20130723, end: 20130903
  17. FIBER [Concomitant]
     Indication: NUTRITIONAL SUPPLEMENTATION
     Route: 065
     Dates: start: 20130722, end: 20130903
  18. ENTERAL NUTRITION [Concomitant]
     Indication: NUTRITIONAL SUPPLEMENTATION
     Route: 065
     Dates: start: 20130723, end: 20130903
  19. ZINC SULFATE [Concomitant]
     Indication: WOUND TREATMENT
     Dosage: 220MG PER DAY
     Route: 048
     Dates: start: 20130718, end: 20130903
  20. COMPLERA [Concomitant]
     Indication: HIV INFECTION
     Route: 048
     Dates: start: 20130506, end: 20130903
  21. NORVIR [Concomitant]
     Indication: HIV INFECTION
     Dosage: 200MG TWICE PER DAY
     Route: 048
     Dates: start: 20120921, end: 20130903
  22. INVIRASE [Concomitant]
     Indication: HIV INFECTION
     Dosage: 500MG PER DAY
     Route: 048
     Dates: start: 20121205, end: 20130903

REACTIONS (11)
  - Meningitis aseptic [Recovered/Resolved]
  - Status epilepticus [Recovered/Resolved]
  - Pulmonary embolism [Not Recovered/Not Resolved]
  - Pneumonia [Recovered/Resolved]
  - Clostridium difficile colitis [Recovered/Resolved]
  - Atrial fibrillation [Recovered/Resolved]
  - Thrombophlebitis [Not Recovered/Not Resolved]
  - Coma [Not Recovered/Not Resolved]
  - Glioblastoma [Fatal]
  - Immune reconstitution inflammatory syndrome [Fatal]
  - Herpes zoster meningoencephalitis [Fatal]
